FAERS Safety Report 15108866 (Version 1)
Quarter: 2018Q3

REPORT INFORMATION
  Report Type: Spontaneous
  Country: FR (occurrence: FR)
  Receive Date: 20180705
  Receipt Date: 20180705
  Transmission Date: 20181010
  Serious: Yes (Hospitalization)
  Sender: FDA-Public Use
  Company Number: FR-ACCORD-069215

PATIENT
  Age: 68 Year
  Sex: Male
  Weight: 80 kg

DRUGS (6)
  1. CISPLATIN. [Suspect]
     Active Substance: CISPLATIN
     Indication: NEUROENDOCRINE CARCINOMA
     Route: 041
     Dates: start: 20180214, end: 20180216
  2. PRAVASTATIN. [Concomitant]
     Active Substance: PRAVASTATIN
     Route: 048
  3. VALSARTAN. [Concomitant]
     Active Substance: VALSARTAN
  4. ALLOPURINOL. [Concomitant]
     Active Substance: ALLOPURINOL
  5. ETOPOSIDE. [Suspect]
     Active Substance: ETOPOSIDE
     Indication: NEUROENDOCRINE CARCINOMA
     Route: 041
     Dates: start: 20180214, end: 20180216
  6. METFORMIN [Concomitant]
     Active Substance: METFORMIN HYDROCHLORIDE

REACTIONS (2)
  - Acute kidney injury [Recovered/Resolved]
  - Off label use [Unknown]

NARRATIVE: CASE EVENT DATE: 20180216
